FAERS Safety Report 26051628 (Version 1)
Quarter: 2025Q4

REPORT INFORMATION
  Report Type: Spontaneous
  Country: EU (occurrence: EU)
  Receive Date: 20251117
  Receipt Date: 20251117
  Transmission Date: 20260117
  Serious: Yes (Hospitalization, Other)
  Sender: AMGEN
  Company Number: EU-AMGEN-ITASP2025222209

PATIENT
  Age: 54 Year
  Sex: Male
  Weight: 92 kg

DRUGS (2)
  1. ARANESP [Suspect]
     Active Substance: DARBEPOETIN ALFA
     Indication: Product used for unknown indication
     Dosage: UNK
     Route: 058
  2. ENVARSUS XR [Concomitant]
     Active Substance: TACROLIMUS
     Dosage: UNK (1/DIE)
     Route: 048
     Dates: start: 202101

REACTIONS (3)
  - Anaemia [Not Recovered/Not Resolved]
  - Bone marrow failure [Unknown]
  - Drug resistance [Unknown]

NARRATIVE: CASE EVENT DATE: 20250101
